FAERS Safety Report 20621041 (Version 2)
Quarter: 2022Q2

REPORT INFORMATION
  Report Type: Other
  Country: US (occurrence: US)
  Receive Date: 20220322
  Receipt Date: 20220411
  Transmission Date: 20220721
  Serious: Yes (Hospitalization, Other)
  Sender: FDA-Public Use
  Company Number: US-Covis Pharma GmbH-2022COV00805

PATIENT
  Age: 30 Year
  Sex: Female
  Weight: 78.088 kg

DRUGS (3)
  1. MAKENA [Suspect]
     Active Substance: HYDROXYPROGESTERONE CAPROATE
     Indication: Premature delivery
     Route: 058
     Dates: start: 20211115, end: 20220225
  2. VITAMINS [Concomitant]
     Active Substance: VITAMINS
     Indication: Pregnancy
     Dates: start: 20211018
  3. VITAMINS [Concomitant]
     Active Substance: VITAMINS
     Indication: Postpartum state

REACTIONS (4)
  - Epistaxis [Recovered/Resolved]
  - Haemoglobin decreased [Unknown]
  - Premature delivery [Recovered/Resolved]
  - Product administration error [Unknown]

NARRATIVE: CASE EVENT DATE: 20220303
